FAERS Safety Report 16771147 (Version 4)
Quarter: 2020Q3

REPORT INFORMATION
  Report Type: Spontaneous
  Country: US (occurrence: US)
  Receive Date: 20190904
  Receipt Date: 20200707
  Transmission Date: 20201102
  Serious: Yes (Other)
  Sender: FDA-Public Use
  Company Number: US-PFIZER INC-2019370696

PATIENT
  Age: 2 Week
  Sex: Male

DRUGS (1)
  1. BUPRENORPHINE. [Suspect]
     Active Substance: BUPRENORPHINE
     Indication: DRUG USE DISORDER
     Dosage: 8 MG, 2X/DAY (FOR SEVERAL MONTHS)
     Route: 063

REACTIONS (10)
  - Lethargy [Unknown]
  - Miosis [Unknown]
  - Somnolence neonatal [Unknown]
  - Hypoglycaemia neonatal [Unknown]
  - Bradycardia neonatal [Unknown]
  - Drug withdrawal syndrome neonatal [Unknown]
  - Selective eating disorder [Unknown]
  - Exposure via breast milk [Unknown]
  - Toxicity to various agents [Unknown]
  - Coma scale abnormal [Unknown]
